FAERS Safety Report 17584478 (Version 5)
Quarter: 2021Q1

REPORT INFORMATION
  Report Type: Spontaneous
  Country: US (occurrence: US)
  Receive Date: 20200326
  Receipt Date: 20210316
  Transmission Date: 20210419
  Serious: No
  Sender: FDA-Public Use
  Company Number: US-PFIZER INC-2019269942

PATIENT
  Age: 88 Year
  Sex: Female

DRUGS (3)
  1. LYRICA [Suspect]
     Active Substance: PREGABALIN
     Dosage: 100 MG, 1X/DAY (50 MG, 2 CAPS Q HS (BEFORE BED)
     Route: 048
  2. LYRICA [Suspect]
     Active Substance: PREGABALIN
     Dosage: 75 MG, 1X/DAY (QHS (BEFORE BED)
     Route: 048
  3. LYRICA [Suspect]
     Active Substance: PREGABALIN
     Dosage: 50 MG, 1X/DAY (QHS (BEFORE BED)
     Route: 048

REACTIONS (4)
  - Hypoacusis [Unknown]
  - Confusional state [Unknown]
  - Sleep disorder [Unknown]
  - Feeling abnormal [Unknown]
